FAERS Safety Report 14119863 (Version 2)
Quarter: 2017Q4

REPORT INFORMATION
  Report Type: Report from Study
  Country: KR (occurrence: KR)
  Receive Date: 20171024
  Receipt Date: 20171211
  Transmission Date: 20180321
  Serious: Yes (Hospitalization)
  Sender: FDA-Public Use
  Company Number: KR-ASTELLAS-2017US031116

PATIENT
  Age: 58 Year
  Sex: Male

DRUGS (14)
  1. ENZALUTAMIDE [Suspect]
     Active Substance: ENZALUTAMIDE
     Route: 048
     Dates: start: 20171021
  2. TACENOL [Concomitant]
     Indication: NEPHROSTOMY
     Dosage: 650 MG  DAILY DOSE, THRICE DAILY
     Route: 048
     Dates: start: 20170816, end: 20170825
  3. MUCOLASE                           /00105901/ [Concomitant]
     Indication: PROPHYLAXIS
     Dosage: 1 MG, (DAILY DOSE) TWICE DAILY
     Route: 048
     Dates: start: 201710
  4. FENTAMAX MAT [Concomitant]
     Indication: PROPHYLAXIS
     Dosage: 1 DF (25 MCG/H, PATCH), THRICE DAILY
     Route: 062
  5. ALBIS [Concomitant]
     Active Substance: BISMUTH SUBCITRATE\RANITIDINE HYDROCHLORIDE\SUCRALFATE
     Indication: PROPHYLAXIS
     Dosage: 1 TABLET, (DAILY DOSE) TWICE DAILY
     Route: 048
     Dates: start: 201710
  6. ENZALUTAMIDE [Suspect]
     Active Substance: ENZALUTAMIDE
     Route: 048
     Dates: start: 20170821, end: 20171015
  7. SUPRAX                             /00497602/ [Concomitant]
     Active Substance: CEFOTAXIME SODIUM
     Indication: NEPHROSTOMY
     Dosage: 100 MG (DAILY DOSE), TWICE DAILY
     Route: 048
     Dates: start: 20170816, end: 20170825
  8. ACTIQ [Concomitant]
     Active Substance: FENTANYL CITRATE
     Indication: PROPHYLAXIS
     Route: 048
  9. MEGACE [Concomitant]
     Active Substance: MEGESTROL ACETATE
     Indication: PROPHYLAXIS
     Dosage: 1 PATCH (DAILY DOSE), THRICE DAILY
     Route: 048
  10. ENZALUTAMIDE [Suspect]
     Active Substance: ENZALUTAMIDE
     Indication: HORMONE-REFRACTORY PROSTATE CANCER
     Route: 048
     Dates: start: 20170601, end: 20170617
  11. MOTILIUM M [Concomitant]
     Indication: PROPHYLAXIS
     Dosage: 10 MG (DAILY DOSE), THRICE DAILY
     Route: 048
  12. SUPRAX                             /00497602/ [Concomitant]
     Active Substance: CEFOTAXIME SODIUM
     Indication: PROPHYLAXIS
  13. TACENOL [Concomitant]
     Indication: PROPHYLAXIS
  14. ENZALUTAMIDE [Suspect]
     Active Substance: ENZALUTAMIDE
     Route: 048
     Dates: start: 20170621, end: 20170818

REACTIONS (7)
  - Scrotal oedema [Recovered/Resolved]
  - Oropharyngeal pain [Recovered/Resolved]
  - Haemoglobin decreased [Recovered/Resolved]
  - Haematuria [Recovered/Resolved]
  - Dyspnoea [Recovered/Resolved]
  - Dyspnoea [Recovered/Resolved]
  - Dyspnoea [Recovered/Resolved]

NARRATIVE: CASE EVENT DATE: 20170617
